FAERS Safety Report 6856941-9 (Version None)
Quarter: 2010Q3

REPORT INFORMATION
  Report Type: 
  Country: None (occurrence: None)
  Receive Date: 20100719
  Receipt Date: 20100707
  Transmission Date: 20110219
  Serious: Yes (Other)
  Sender: FDA-Public Use
  Company Number: NO-BAYER-200937317GPV

PATIENT
  Age: 40 Year
  Sex: Female

DRUGS (2)
  1. MIRENA [Suspect]
     Indication: PRODUCT USED FOR UNKNOWN INDICATION
     Route: 015
     Dates: start: 20080101, end: 20090903
  2. MIRENA [Suspect]
     Route: 015
     Dates: start: 20090903, end: 20090903

REACTIONS (3)
  - DEVICE DISLOCATION [None]
  - PROCEDURAL PAIN [None]
  - SMEAR CERVIX ABNORMAL [None]
